FAERS Safety Report 24761854 (Version 2)
Quarter: 2025Q3

REPORT INFORMATION
  Report Type: Spontaneous
  Country: US (occurrence: US)
  Receive Date: 20241221
  Receipt Date: 20250803
  Transmission Date: 20251020
  Serious: Yes (Death, Other)
  Sender: ALEXION PHARMACEUTICALS
  Company Number: US-ASTRAZENECA-202412USA016532US

PATIENT
  Sex: Female

DRUGS (9)
  1. SEROQUEL [Suspect]
     Active Substance: QUETIAPINE FUMARATE
  2. PRILOSEC [Suspect]
     Active Substance: OMEPRAZOLE MAGNESIUM
  3. AMLODIPINE [Suspect]
     Active Substance: AMLODIPINE BESYLATE
  4. MIRTAZAPINE [Suspect]
     Active Substance: MIRTAZAPINE
  5. FERROUS SULFATE [Suspect]
     Active Substance: FERROUS SULFATE
  6. CLOPIDOGREL [Suspect]
     Active Substance: CLOPIDOGREL BISULFATE
  7. FUROSEMIDE [Suspect]
     Active Substance: FUROSEMIDE
  8. CETIRIZINE [Suspect]
     Active Substance: CETIRIZINE HYDROCHLORIDE
  9. SIMVASTATIN [Suspect]
     Active Substance: SIMVASTATIN

REACTIONS (2)
  - Toxicity to various agents [Fatal]
  - Completed suicide [Fatal]
